FAERS Safety Report 20934356 (Version 1)
Quarter: 2022Q2

REPORT INFORMATION
  Report Type: Spontaneous
  Country: US (occurrence: None)
  Receive Date: 20220607
  Receipt Date: 20220607
  Transmission Date: 20220721
  Serious: No
  Sender: FDA-Public Use
  Company Number: None

PATIENT
  Age: 38 Year
  Sex: Female

DRUGS (2)
  1. DIMETHYL FUMARATE [Suspect]
     Active Substance: DIMETHYL FUMARATE
     Dosage: FREQUENCY : TWICE A DAY;?
     Route: 048
     Dates: start: 202203
  2. OTEZLA [Suspect]
     Active Substance: APREMILAST

REACTIONS (4)
  - Multiple sclerosis relapse [None]
  - SARS-CoV-2 test positive [None]
  - Arthritis [None]
  - Flushing [None]

NARRATIVE: CASE EVENT DATE: 20220607
